FAERS Safety Report 11995680 (Version 1)
Quarter: 2016Q1

REPORT INFORMATION
  Report Type: Spontaneous
  Country: JP (occurrence: JP)
  Receive Date: 20160203
  Receipt Date: 20160203
  Transmission Date: 20160526
  Serious: Yes (Other)
  Sender: FDA-Public Use
  Company Number: JP-PSKUSFDA-2016-JP-0016

PATIENT
  Age: 81 Year
  Sex: Female

DRUGS (1)
  1. FARESTON [Suspect]
     Active Substance: TOREMIFENE CITRATE
     Indication: BREAST CANCER

REACTIONS (3)
  - Rectosigmoid cancer [None]
  - Adenomyosis [None]
  - Endometrial hyperplasia [Recovered/Resolved with Sequelae]
